FAERS Safety Report 6381098-0 (Version None)
Quarter: 2009Q3

REPORT INFORMATION
  Report Type: 
  Country: None (occurrence: None)
  Receive Date: 20090924
  Receipt Date: 20090825
  Transmission Date: 20100115
  Serious: Yes (Hospitalization)
  Sender: FDA-Public Use
  Company Number: 230079J09BRA

PATIENT
  Age: 38 Year
  Sex: Female

DRUGS (6)
  1. REBIF [Suspect]
     Indication: RELAPSING-REMITTING MULTIPLE SCLEROSIS
     Dosage: 22 MCG, 3 IN 1 WEEKS
     Dates: start: 20090218
  2. TYLENOL [Concomitant]
  3. VITAMIN E (TOCOPHEROL/00110501/) [Concomitant]
  4. ASCORBIC ACID [Concomitant]
  5. OLANZAPINE [Concomitant]
  6. EPILENIL (VALPROIC ACID) (VALPROIC ACID /00228501/) [Concomitant]

REACTIONS (3)
  - ANXIETY [None]
  - BIPOLAR DISORDER [None]
  - REFUSAL OF TREATMENT BY PATIENT [None]
